FAERS Safety Report 5694275-9 (Version None)
Quarter: 2008Q2

REPORT INFORMATION
  Report Type: 
  Country: None (occurrence: None)
  Receive Date: 20080404
  Receipt Date: 20080304
  Transmission Date: 20081010
  Serious: No
  Sender: FDA-Public Use
  Company Number: US-BAYER-200816493NA

PATIENT
  Age: 36 Year
  Sex: Female
  Weight: 50 kg

DRUGS (2)
  1. YASMIN [Suspect]
     Indication: CONTRACEPTION
     Route: 048
     Dates: start: 20070901
  2. CALCIUM SUPPLEMENTS NOS [Concomitant]

REACTIONS (1)
  - DIZZINESS [None]
